FAERS Safety Report 5896190-4 (Version None)
Quarter: 2008Q3

REPORT INFORMATION
  Report Type: 
  Country: None (occurrence: None)
  Receive Date: 20080924
  Receipt Date: 20070410
  Transmission Date: 20090109
  Serious: Yes (Other)
  Sender: FDA-Public Use
  Company Number: US-ASTRAZENECA-2007UW02024

PATIENT
  Age: 47 Year
  Sex: Male
  Weight: 102.5 kg

DRUGS (1)
  1. SEROQUEL [Suspect]
     Indication: BIPOLAR DISORDER
     Route: 048
     Dates: start: 20030101

REACTIONS (3)
  - DIABETES MELLITUS [None]
  - RENAL FAILURE [None]
  - WEIGHT INCREASED [None]
